FAERS Safety Report 24974326 (Version 2)
Quarter: 2025Q1

REPORT INFORMATION
  Report Type: Report from Study
  Country: IN (occurrence: IN)
  Receive Date: 20250217
  Receipt Date: 20250219
  Transmission Date: 20250409
  Serious: Yes (Hospitalization)
  Sender: ROCHE
  Company Number: IN-ROCHE-10000010438

PATIENT
  Age: 67 Year
  Sex: Female
  Weight: 60.7 kg

DRUGS (1)
  1. PERJETA [Suspect]
     Active Substance: PERTUZUMAB
     Indication: Breast cancer
     Route: 040
     Dates: start: 20210903

REACTIONS (11)
  - Asthenia [Unknown]
  - Food poisoning [Unknown]
  - Hypotension [Unknown]
  - Breast mass [Unknown]
  - Blood pressure diastolic decreased [Unknown]
  - Heart rate increased [Unknown]
  - Haemoglobin decreased [Unknown]
  - Neutrophil count increased [Unknown]
  - Lung opacity [Unknown]
  - Inflammation [Unknown]
  - Infection [Unknown]
